FAERS Safety Report 9526668 (Version 1)
Quarter: 2013Q3

REPORT INFORMATION
  Report Type: Spontaneous
  Country: US (occurrence: US)
  Receive Date: 20130916
  Receipt Date: 20130916
  Transmission Date: 20140515
  Serious: No
  Sender: FDA-Public Use
  Company Number: US-PURDUE-USA-2012-0086794

PATIENT
  Age: 42 Year
  Sex: Female

DRUGS (1)
  1. INTERMEZZO [Suspect]
     Indication: PRODUCT USED FOR UNKNOWN INDICATION
     Dosage: UNK, SEE TEXT
     Route: 060

REACTIONS (4)
  - Application site ulcer [Unknown]
  - Aphthous stomatitis [Unknown]
  - Product solubility abnormal [Unknown]
  - Oral pain [Unknown]
